FAERS Safety Report 11467631 (Version 1)
Quarter: 2015Q3

REPORT INFORMATION
  Report Type: Report from Study
  Country: BR (occurrence: BR)
  Receive Date: 20150908
  Receipt Date: 20150908
  Transmission Date: 20151125
  Serious: Yes (Hospitalization)
  Sender: FDA-Public Use
  Company Number: PHHY2015BR105561

PATIENT
  Age: 54 Year
  Sex: Male
  Weight: 80 kg

DRUGS (3)
  1. ONBREZ [Suspect]
     Active Substance: INDACATEROL
     Indication: PLEURAL EFFUSION
  2. ONBREZ [Suspect]
     Active Substance: INDACATEROL
     Indication: PULMONARY OEDEMA
     Dosage: 1 CAPSULE IN THE MORNING
     Route: 065
     Dates: start: 201412
  3. ONBREZ [Suspect]
     Active Substance: INDACATEROL
     Indication: DYSPNOEA

REACTIONS (3)
  - Product use issue [Unknown]
  - Cerebrovascular accident [Unknown]
  - Malaise [Unknown]

NARRATIVE: CASE EVENT DATE: 20150621
